FAERS Safety Report 16688013 (Version 1)
Quarter: 2019Q3

REPORT INFORMATION
  Report Type: Spontaneous
  Country: AU (occurrence: AU)
  Receive Date: 20190809
  Receipt Date: 20190809
  Transmission Date: 20191004
  Serious: Yes (Other)
  Sender: FDA-Public Use
  Company Number: AU-SA-2019SA212844

PATIENT
  Age: 47 Year

DRUGS (5)
  1. ISONIAZID. [Suspect]
     Active Substance: ISONIAZID
     Indication: MENINGITIS TUBERCULOUS
     Dosage: QUADRUPLE THERAPY
  2. DEXAMETHASONE SALT NOT SPECIFIED [Suspect]
     Active Substance: DEXAMETHASONE
     Indication: MENINGITIS TUBERCULOUS
     Dosage: 4 MG, TID
  3. ETHAMBUTOL [Suspect]
     Active Substance: ETHAMBUTOL HYDROCHLORIDE
     Indication: MENINGITIS TUBERCULOUS
     Dosage: QUADRUPLE THERAPY
  4. RIFAMPICIN [Suspect]
     Active Substance: RIFAMPIN
     Indication: MENINGITIS TUBERCULOUS
     Dosage: QUADRUPLE THERAPY
  5. PYRAZINAMIDE. [Suspect]
     Active Substance: PYRAZINAMIDE
     Indication: MENINGITIS TUBERCULOUS
     Dosage: QUADRUPLE THERAPY

REACTIONS (4)
  - Seizure [Unknown]
  - Meningitis tuberculous [Unknown]
  - Drug ineffective [Unknown]
  - Neurological decompensation [Unknown]
